FAERS Safety Report 4630495-X (Version None)
Quarter: 2005Q2

REPORT INFORMATION
  Report Type: 
  Country: None (occurrence: None)
  Receive Date: 20050406
  Receipt Date: 20050318
  Transmission Date: 20051028
  Serious: Yes (Death)
  Sender: FDA-Public Use
  Company Number: USA050393570

PATIENT
  Sex: Female

DRUGS (1)
  1. XIGRIS [Suspect]
     Dates: start: 20050301, end: 20050301

REACTIONS (1)
  - DEATH [None]
